FAERS Safety Report 14983951 (Version 3)
Quarter: 2018Q3

REPORT INFORMATION
  Report Type: Spontaneous
  Country: PL (occurrence: PL)
  Receive Date: 20180607
  Receipt Date: 20180717
  Transmission Date: 20181010
  Serious: Yes (Death, Life-Threatening, Hospitalization)
  Sender: FDA-Public Use
  Company Number: PL-ACTELION-A-CH2018-173191

PATIENT
  Age: 69 Year
  Sex: Female

DRUGS (35)
  1. ALDACTONE [Concomitant]
     Active Substance: SPIRONOLACTONE
     Dosage: UNK
     Dates: start: 201802
  2. LEVONOR [Concomitant]
     Dosage: UNK
     Dates: start: 20180410
  3. CLEXANE [Concomitant]
     Active Substance: ENOXAPARIN SODIUM
     Dosage: UNK
     Dates: start: 20180216
  4. EUPHYLLIN [Concomitant]
     Active Substance: AMINOPHYLLINE
     Dosage: UNK
     Dates: start: 20180318
  5. TARDYFERON?FOL [Concomitant]
  6. TULIP [Concomitant]
     Dosage: UNK
     Dates: start: 20180216
  7. VALTAP [Concomitant]
  8. BIOTUM [Concomitant]
     Dosage: UNK
     Dates: start: 20180420
  9. LOPERAMIDE [Concomitant]
     Active Substance: LOPERAMIDE
     Dosage: UNK
     Dates: start: 20180404
  10. MANNITOL. [Concomitant]
     Active Substance: MANNITOL
     Dosage: UNK
     Dates: start: 20180418
  11. TRIFAS COR [Concomitant]
  12. ATROVENT [Concomitant]
     Active Substance: IPRATROPIUM BROMIDE
  13. CONCOR COR [Concomitant]
     Active Substance: BISOPROLOL FUMARATE
  14. ELECTROLYTES NOS [Concomitant]
     Active Substance: ELECTROLYTES NOS
     Dosage: UNK
     Dates: start: 201802
  15. INSPRA [Concomitant]
     Active Substance: EPLERENONE
  16. PROXACIN [Concomitant]
     Dosage: UNK
     Dates: start: 20180318
  17. REMODULIN [Concomitant]
     Active Substance: TREPROSTINIL
     Dosage: UNK
     Dates: start: 20180216, end: 20180411
  18. REVATIO [Concomitant]
     Active Substance: SILDENAFIL CITRATE
     Dosage: UNK
     Dates: start: 20180216, end: 20180411
  19. SODIUM CHLORIDE. [Concomitant]
     Active Substance: SODIUM CHLORIDE
     Dosage: UNK
     Dates: start: 201802
  20. ZARZIO [Concomitant]
     Active Substance: FILGRASTIM
     Dosage: UNK
     Dates: start: 20180424
  21. MULTILAC SYNBIOTIC [Concomitant]
     Dosage: UNK
     Dates: start: 20180417
  22. BIOTRAKSON [Concomitant]
     Active Substance: CEFTRIAXONE SODIUM
     Dosage: UNK
     Dates: start: 20180320, end: 20180419
  23. DOPAMINE [Concomitant]
     Active Substance: DOPAMINE\DOPAMINE HYDROCHLORIDE
     Dosage: UNK
     Dates: start: 20180216
  24. ENCORTON [Concomitant]
     Active Substance: PREDNISONE
     Dosage: UNK
     Dates: start: 20180420
  25. KALDYUM [Concomitant]
     Active Substance: POTASSIUM CHLORIDE
  26. NYSTATIN. [Concomitant]
     Active Substance: NYSTATIN
     Dosage: UNK
     Dates: start: 20180424
  27. VELETRI [Suspect]
     Active Substance: EPOPROSTENOL
     Indication: PULMONARY ARTERIAL HYPERTENSION
     Dosage: UNK
     Route: 042
     Dates: start: 20180411, end: 20180426
  28. DEXAVEN [Concomitant]
     Active Substance: DEXAMETHASONE
     Dosage: UNK
     Dates: start: 20180422
  29. MILURIT [Concomitant]
     Active Substance: ALLOPURINOL
  30. OZZION [Concomitant]
  31. FURAGIN [Concomitant]
     Dosage: UNK
     Dates: start: 20180216
  32. FURAGIN [Concomitant]
     Dosage: UNK
     Dates: start: 20180312
  33. NASEN [Concomitant]
  34. PERFALGAN [Concomitant]
     Active Substance: ACETAMINOPHEN
     Dosage: UNK
     Dates: start: 20180409
  35. ZOFRAN [Concomitant]
     Active Substance: ONDANSETRON HYDROCHLORIDE
     Dosage: UNK
     Dates: start: 20180330

REACTIONS (5)
  - Condition aggravated [Fatal]
  - Asthenia [Unknown]
  - Respiratory arrest [Fatal]
  - Neutropenia [Fatal]
  - Cor pulmonale chronic [Fatal]

NARRATIVE: CASE EVENT DATE: 201804
